FAERS Safety Report 21009395 (Version 1)
Quarter: 2022Q2

REPORT INFORMATION
  Report Type: Spontaneous
  Country: US (occurrence: None)
  Receive Date: 20220624
  Receipt Date: 20220624
  Transmission Date: 20220721
  Serious: Yes (Other)
  Sender: FDA-Public Use
  Company Number: None

PATIENT
  Age: 14 Year
  Sex: Male

DRUGS (1)
  1. RITUXAN [Suspect]
     Active Substance: RITUXIMAB

REACTIONS (3)
  - Cough [None]
  - Infusion related reaction [None]
  - Paraesthesia oral [None]

NARRATIVE: CASE EVENT DATE: 20220623
